FAERS Safety Report 20962869 (Version 1)
Quarter: 2022Q2

REPORT INFORMATION
  Report Type: Other
  Country: US (occurrence: None)
  Receive Date: 20220615
  Receipt Date: 20220615
  Transmission Date: 20220721
  Serious: Yes (Death)
  Sender: FDA-Public Use
  Company Number: US-ROCHE-3116029

PATIENT
  Age: 64 Year
  Sex: Male

DRUGS (1)
  1. OCREVUS [Suspect]
     Active Substance: OCRELIZUMAB
     Indication: Primary progressive multiple sclerosis
     Dosage: INFUSE 600 MG EVERY 6 MONTHS
     Route: 065

REACTIONS (2)
  - Pneumonia [Fatal]
  - COVID-19 [Unknown]

NARRATIVE: CASE EVENT DATE: 20220508
